FAERS Safety Report 21144423 (Version 1)
Quarter: 2022Q3

REPORT INFORMATION
  Report Type: Spontaneous
  Country: US (occurrence: US)
  Receive Date: 20220728
  Receipt Date: 20220728
  Transmission Date: 20221027
  Serious: No
  Sender: FDA-Public Use
  Company Number: US-PFIZER INC-202201010961

PATIENT
  Sex: Male

DRUGS (1)
  1. MILRINONE [Suspect]
     Active Substance: MILRINONE
     Dosage: UNK

REACTIONS (1)
  - Blood pressure decreased [Unknown]
